FAERS Safety Report 10083563 (Version 1)
Quarter: 2014Q2

REPORT INFORMATION
  Report Type: Spontaneous
  Country: US (occurrence: None)
  Receive Date: 20140416
  Receipt Date: 20140416
  Transmission Date: 20141212
  Serious: Yes (Hospitalization)
  Sender: FDA-Public Use
  Company Number: None

PATIENT
  Sex: Male
  Weight: 178 kg

DRUGS (1)
  1. RITUXIMAB [Suspect]

REACTIONS (5)
  - Heart rate increased [None]
  - Body temperature increased [None]
  - Atrial fibrillation [None]
  - Atrial flutter [None]
  - Pulmonary hypertension [None]
